FAERS Safety Report 6424739-1 (Version None)
Quarter: 2009Q4

REPORT INFORMATION
  Report Type: 
  Country: None (occurrence: None)
  Receive Date: 20091029
  Receipt Date: 20091019
  Transmission Date: 20100525
  Serious: Yes (Other)
  Sender: FDA-Public Use
  Company Number: PAR_03231_2009

PATIENT
  Age: 38 Year
  Sex: Female

DRUGS (3)
  1. IBUPROFEN [Suspect]
     Indication: DRUG USE FOR UNKNOWN INDICATION
     Dosage: (DF)
  2. DICLOFENAC (DICLOFENAC) [Suspect]
     Indication: DRUG USE FOR UNKNOWN INDICATION
     Dosage: (DF)
  3. PARACETAMOL (PARACETAMOL) [Suspect]
     Indication: DRUG USE FOR UNKNOWN INDICATION
     Dosage: (1 G,)

REACTIONS (3)
  - DRUG INTOLERANCE [None]
  - DYSPNOEA [None]
  - RASH [None]
